FAERS Safety Report 5976637-5 (Version None)
Quarter: 2008Q4

REPORT INFORMATION
  Report Type: 
  Country: None (occurrence: None)
  Receive Date: 20081202
  Receipt Date: 20081202
  Transmission Date: 20090506
  Serious: Yes (Life-Threatening)
  Sender: FDA-Public Use
  Company Number: None

PATIENT
  Sex: Male
  Weight: 70 kg

DRUGS (1)
  1. EPINEPHRINE [Suspect]
     Indication: CARDIAC ABLATION
     Dosage: 1 MG ONE TIME IV BOLUS
     Route: 040
     Dates: start: 20081107, end: 20081107

REACTIONS (9)
  - BLOOD PRESSURE DECREASED [None]
  - CHEST PAIN [None]
  - ELECTROCARDIOGRAM ABNORMAL [None]
  - HEADACHE [None]
  - INCORRECT DOSE ADMINISTERED [None]
  - MEDICATION ERROR [None]
  - NAUSEA [None]
  - VENTRICULAR ARRHYTHMIA [None]
  - VOMITING [None]
